FAERS Safety Report 22752580 (Version 2)
Quarter: 2023Q4

REPORT INFORMATION
  Report Type: Spontaneous
  Country: US (occurrence: None)
  Receive Date: 20230726
  Receipt Date: 20231106
  Transmission Date: 20240109
  Serious: Yes (Life-Threatening, Hospitalization)
  Sender: FDA-Public Use
  Company Number: US-ROCHE-3392566

PATIENT
  Age: 27 Year
  Sex: Female

DRUGS (1)
  1. OCREVUS [Suspect]
     Active Substance: OCRELIZUMAB
     Indication: Multiple sclerosis
     Dosage: RESUMED DOSE ON FEB/2022, LAST DOSE WOULD HAVE BEEN EARLY IN 2023, LAST DOSE OF OCRELIZUMAB PRIOR TO
     Route: 065
     Dates: start: 202002

REACTIONS (2)
  - Maternal exposure before pregnancy [Unknown]
  - Neutropenia [Unknown]
